FAERS Safety Report 6189318-2 (Version None)
Quarter: 2009Q2

REPORT INFORMATION
  Report Type: 
  Country: None (occurrence: None)
  Receive Date: 20090512
  Receipt Date: 20090501
  Transmission Date: 20091009
  Serious: Yes (Hospitalization)
  Sender: FDA-Public Use
  Company Number: 232953K09USA

PATIENT
  Age: 49 Year
  Sex: Female

DRUGS (6)
  1. REBIF [Suspect]
     Indication: MULTIPLE SCLEROSIS
     Dosage: 44 MCG, 3 IN 1 WEEKS, SUBCUTANEOUS
     Route: 058
     Dates: start: 20081021
  2. CARBATROL [Concomitant]
  3. DEPAKOTE [Concomitant]
  4. OXYBUTYNIN CHLORIDE [Concomitant]
  5. VITAMIN D [Concomitant]
  6. MAGNESIUM (MAGNESIUM HYDROXIDE) [Concomitant]

REACTIONS (8)
  - BLOOD PRESSURE INADEQUATELY CONTROLLED [None]
  - DEHYDRATION [None]
  - DIABETES MELLITUS INADEQUATE CONTROL [None]
  - EATING DISORDER [None]
  - FEELING OF BODY TEMPERATURE CHANGE [None]
  - LUNG INJURY [None]
  - PNEUMONIA [None]
  - PULMONARY EMBOLISM [None]
